FAERS Safety Report 4464889-2 (Version None)
Quarter: 2004Q4

REPORT INFORMATION
  Report Type: 
  Country: None (occurrence: None)
  Receive Date: 20041004
  Receipt Date: 20040113
  Transmission Date: 20050328
  Serious: No
  Sender: FDA-Public Use
  Company Number: 359461

PATIENT

DRUGS (2)
  1. COREG [Suspect]
     Indication: ILL-DEFINED DISORDER
  2. TOPROL-XL [Concomitant]
     Indication: ILL-DEFINED DISORDER
     Route: 048

REACTIONS (1)
  - DIZZINESS [None]
